FAERS Safety Report 9349647 (Version 1)
Quarter: 2013Q2

REPORT INFORMATION
  Report Type: Spontaneous
  Country: US (occurrence: US)
  Receive Date: 20130614
  Receipt Date: 20130614
  Transmission Date: 20140414
  Serious: Yes (Other)
  Sender: FDA-Public Use
  Company Number: US-ASTRAZENECA-2013SE41848

PATIENT
  Sex: Male

DRUGS (1)
  1. SEROQUEL [Suspect]
     Route: 048

REACTIONS (5)
  - Self injurious behaviour [Unknown]
  - Mental disability [Unknown]
  - Abnormal behaviour [Unknown]
  - Fatigue [Unknown]
  - Drug dose omission [Unknown]
